FAERS Safety Report 8906738 (Version 1)
Quarter: 2012Q4

REPORT INFORMATION
  Report Type: 
  Country: SE (occurrence: SE)
  Receive Date: 20121114
  Receipt Date: 20121114
  Transmission Date: 20130627
  Serious: Yes (Hospitalization)
  Sender: FDA-Public Use
  Company Number: SE-PFIZER INC-2012280419

PATIENT
  Age: 33 Year
  Sex: Female
  Weight: 65 kg

DRUGS (3)
  1. GENOTROPIN [Suspect]
     Indication: GROWTH HORMONE DEFICIENCY
     Dosage: 0.1mg, 1x/day,7 injections/week
     Route: 058
     Dates: start: 20070515
  2. ESTRADIOL [Concomitant]
     Indication: LUTEINISING HORMONE DEFICIENCY
     Dosage: UNK
     Dates: start: 20010423
  3. ESTRADIOL [Concomitant]
     Indication: FOLLICLE-STIMULATING HORMONE DEFICIENCY

REACTIONS (1)
  - Tonsillitis [Unknown]
